FAERS Safety Report 21950891 (Version 2)
Quarter: 2023Q1

REPORT INFORMATION
  Report Type: Spontaneous
  Country: US (occurrence: US)
  Receive Date: 20230203
  Receipt Date: 20230307
  Transmission Date: 20230418
  Serious: No
  Sender: FDA-Public Use
  Company Number: US-PFIZER INC-202300047263

PATIENT
  Age: 70 Year
  Sex: Female
  Weight: 68.04 kg

DRUGS (11)
  1. PAXLOVID [Suspect]
     Active Substance: NIRMATRELVIR\RITONAVIR
     Indication: COVID-19 treatment
     Dosage: [PF-07321332 300 MG]/[RITONAVIR100 MG];2X/DAY
     Dates: start: 20230130
  2. ATORVASTATIN [Concomitant]
     Active Substance: ATORVASTATIN
     Dosage: 20 MG, 1X/DAY
  3. MONTELUKAST [Concomitant]
     Active Substance: MONTELUKAST SODIUM
     Indication: Multiple allergies
     Dosage: 10 MG, 1X/DAY
  4. BREO ELLIPTA [Concomitant]
     Active Substance: FLUTICASONE FUROATE\VILANTEROL TRIFENATATE
     Indication: Multiple allergies
     Dosage: 1 DF, 1X/DAY: IN THE MORNING
  5. CARVEDILOL [Concomitant]
     Active Substance: CARVEDILOL
     Indication: Multiple allergies
     Dosage: 25 MG, 2X/DAY: ONE TABLET AM AND ONE TABLET PM
  6. HYDROCHLOROTHIAZIDE\VALSARTAN [Concomitant]
     Active Substance: HYDROCHLOROTHIAZIDE\VALSARTAN
     Indication: Hypertension
     Dosage: 1 DF
  7. PANTOPRAZOLE [Concomitant]
     Active Substance: PANTOPRAZOLE
     Indication: Gastrooesophageal reflux disease
     Dosage: 40 MG, 1X/DAY IN PM
  8. FLONASE [Concomitant]
     Active Substance: FLUTICASONE PROPIONATE
     Indication: Multiple allergies
     Dosage: UNK, AS NEEDED
  9. ALBUTEROL [Concomitant]
     Active Substance: ALBUTEROL
     Indication: Hypersensitivity
     Dosage: 108 INHALER
  10. FAMOTIDINE [Concomitant]
     Active Substance: FAMOTIDINE
     Indication: Gastrooesophageal reflux disease
     Dosage: 40 MG, 1X/DAY IN PM
  11. VITAMINS NOS [Concomitant]
     Active Substance: VITAMINS

REACTIONS (3)
  - Dizziness [Not Recovered/Not Resolved]
  - Thirst [Not Recovered/Not Resolved]
  - Diarrhoea [Unknown]

NARRATIVE: CASE EVENT DATE: 20230101
